FAERS Safety Report 4502882-1 (Version None)
Quarter: 2004Q4

REPORT INFORMATION
  Report Type: 
  Country: None (occurrence: None)
  Receive Date: 20041116
  Receipt Date: 20041116
  Transmission Date: 20050328
  Serious: Yes (Hospitalization)
  Sender: FDA-Public Use
  Company Number: None

PATIENT
  Age: 79 Year
  Sex: Male
  Weight: 78 kg

DRUGS (25)
  1. TERAZOSIN HCL [Suspect]
     Indication: URINARY TRACT DISORDER
     Dosage: 2MG QHS
     Dates: start: 20040304, end: 20040802
  2. CALCIUM [Concomitant]
  3. VITAMIN [Concomitant]
  4. FORMOTEROL FUMARATE [Concomitant]
  5. GUAIFENESIN [Concomitant]
  6. RISPERIDONE [Concomitant]
  7. ??? SE.........NE HCL [Concomitant]
  8. DILTIAZEM (INWOOD) [Concomitant]
  9. FINASTERIDE [Concomitant]
  10. SIMVASTATIN [Concomitant]
  11. ACETAMINOPHEN 300/CODEINE [Concomitant]
  12. DOXYCYCLINE HYCLATE [Concomitant]
  13. FLUNISOLIDE [Concomitant]
  14. PREDNISONE [Concomitant]
  15. ALBUTEROL [Concomitant]
  16. FLUNISOLIDE [Concomitant]
  17. NITROGLYCERIN [Concomitant]
  18. RANITIDINE HCL [Concomitant]
  19. ALBUTEROL 3/IPRATROP [Concomitant]
  20. ALBUTEROL [Concomitant]
  21. CHLORPHENIRAMINE MALEATE [Concomitant]
  22. ASPIRIN [Concomitant]
  23. TERAZOSIN HCL [Concomitant]
  24. ETODOLAC [Concomitant]
  25. ZINC OXIDE [Concomitant]

REACTIONS (2)
  - DIZZINESS [None]
  - FALL [None]
